FAERS Safety Report 8291614-X (Version None)
Quarter: 2012Q2

REPORT INFORMATION
  Report Type: 
  Country: None (occurrence: None)
  Receive Date: 20120417
  Receipt Date: 20110916
  Transmission Date: 20120825
  Serious: No
  Sender: FDA-Public Use
  Company Number: US-ASTRAZENECA-2011SE35382

PATIENT
  Age: 65 Year
  Sex: Female

DRUGS (1)
  1. NEXIUM [Suspect]
     Route: 048

REACTIONS (13)
  - BLOOD POTASSIUM DECREASED [None]
  - ARTHROPATHY [None]
  - BLOOD SODIUM DECREASED [None]
  - BACK DISORDER [None]
  - OEDEMA [None]
  - BLOOD ELECTROLYTES ABNORMAL [None]
  - ARTHRITIS [None]
  - BALANCE DISORDER [None]
  - CARDIAC DISORDER [None]
  - FALL [None]
  - HEAD INJURY [None]
  - DRUG DOSE OMISSION [None]
  - GASTROOESOPHAGEAL REFLUX DISEASE [None]
